FAERS Safety Report 7424209-8 (Version None)
Quarter: 2011Q2

REPORT INFORMATION
  Report Type: 
  Country: None (occurrence: None)
  Receive Date: 20110419
  Receipt Date: 20110407
  Transmission Date: 20111010
  Serious: Yes (Life-Threatening, Hospitalization)
  Sender: FDA-Public Use
  Company Number: AU-NOVOPROD-201806

PATIENT
  Age: 78 Year
  Sex: Male
  Weight: 70 kg

DRUGS (7)
  1. NOVOSEVEN [Suspect]
     Indication: FACTOR VIII DEFICIENCY
  2. RANITIDINE [Concomitant]
     Route: 048
  3. ATENOLOL [Concomitant]
  4. NIFEDIPINE [Concomitant]
  5. IMDUR [Concomitant]
  6. PANADEINE PLUS [Concomitant]
  7. NITRADOS [Concomitant]

REACTIONS (1)
  - MYOCARDIAL INFARCTION [None]
